FAERS Safety Report 17769620 (Version 1)
Quarter: 2020Q2

REPORT INFORMATION
  Report Type: Spontaneous
  Country: FR (occurrence: FR)
  Receive Date: 20200512
  Receipt Date: 20200512
  Transmission Date: 20200714
  Serious: Yes (Life-Threatening, Hospitalization, Other)
  Sender: FDA-Public Use
  Company Number: FR-ACCORD-171015

PATIENT
  Age: 75 Year
  Sex: Female

DRUGS (6)
  1. CEFTAROLINE [Suspect]
     Active Substance: CEFTAROLINE
     Indication: ENTEROBACTER INFECTION
     Dosage: 4 TIMES DAILY
  2. DAPTOMYCIN. [Suspect]
     Active Substance: DAPTOMYCIN
     Indication: STAPHYLOCOCCAL INFECTION
  3. AMIKACIN. [Concomitant]
     Active Substance: AMIKACIN
     Route: 042
  4. SULFAMETHOXAZOLE/TRIMETHOPRIM [Concomitant]
     Active Substance: SULFAMETHOXAZOLE\TRIMETHOPRIM
  5. LINEZOLID. [Suspect]
     Active Substance: LINEZOLID
     Indication: STAPHYLOCOCCAL INFECTION
  6. CEFEPIME [Suspect]
     Active Substance: CEFEPIME HYDROCHLORIDE
     Indication: STAPHYLOCOCCAL INFECTION
     Dosage: FROM D75 TO D100
     Route: 042

REACTIONS (6)
  - Acute kidney injury [Unknown]
  - Drug ineffective [Unknown]
  - Dehydration [Unknown]
  - Drug resistance [Unknown]
  - Acute generalised exanthematous pustulosis [Unknown]
  - Toxic skin eruption [Unknown]
